FAERS Safety Report 24000491 (Version 1)
Quarter: 2024Q2

REPORT INFORMATION
  Report Type: Report from Study
  Country: KR (occurrence: KR)
  Receive Date: 20240621
  Receipt Date: 20240621
  Transmission Date: 20240716
  Serious: Yes (Hospitalization, Other)
  Sender: FDA-Public Use
  Company Number: KR-BR-2024-0108

PATIENT
  Age: 75 Year
  Sex: Male
  Weight: 62.7 kg

DRUGS (4)
  1. LURBINECTEDIN [Suspect]
     Active Substance: LURBINECTEDIN
     Indication: Small cell lung cancer
     Dosage: 3.2 MILLIGRAM/SQ. METER, Q3W
     Route: 042
     Dates: start: 20231023, end: 20231023
  2. ANGIBID SR [Concomitant]
     Indication: Coronary artery disease
     Dosage: 40 MILLIGRAM, BID
     Route: 048
     Dates: start: 200201
  3. EDOXABAN TOSYLATE [Concomitant]
     Active Substance: EDOXABAN TOSYLATE
     Indication: Coronary artery disease
     Dosage: 30 MILLIGRAM, QD
     Route: 048
     Dates: start: 200201
  4. MACPERAN [METOCLOPRAMIDE] [Concomitant]
     Indication: Prophylaxis of nausea and vomiting
     Dosage: 10 MILLIGRAM
     Route: 048
     Dates: start: 20231023, end: 20231023

REACTIONS (1)
  - Cytopenia [Recovered/Resolved]

NARRATIVE: CASE EVENT DATE: 20231030
